FAERS Safety Report 19821319 (Version 1)
Quarter: 2021Q3

REPORT INFORMATION
  Report Type: Spontaneous
  Country: IT (occurrence: IT)
  Receive Date: 20210913
  Receipt Date: 20210913
  Transmission Date: 20211014
  Serious: Yes (Death, Life-Threatening, Hospitalization)
  Sender: FDA-Public Use
  Company Number: IT-STRIDES ARCOLAB LIMITED-2021SP027491

PATIENT
  Age: 73 Year
  Sex: Female

DRUGS (5)
  1. RITUXIMAB. [Suspect]
     Active Substance: RITUXIMAB
     Dosage: 500 MILLIGRAM, MAINTENANCE THERAPY? 500 MG FIXED 6 MONTH DOSE
     Route: 065
     Dates: start: 201710, end: 20201109
  2. CYCLOPHOSPHAMIDE. [Concomitant]
     Active Substance: CYCLOPHOSPHAMIDE
     Indication: GRANULOMATOSIS WITH POLYANGIITIS
     Dosage: UNK, CUMULATIVE DOSE OF 12 G
     Route: 065
     Dates: start: 201609, end: 201709
  3. PREDNISOLONE. [Suspect]
     Active Substance: PREDNISOLONE
     Indication: GRANULOMATOSIS WITH POLYANGIITIS
     Dosage: 2.5 MILLIGRAM PER DAY
     Route: 065
  4. RITUXIMAB. [Suspect]
     Active Substance: RITUXIMAB
     Dosage: UNK, INDUCTION THERAPY
     Route: 065
     Dates: start: 2017
  5. RITUXIMAB. [Suspect]
     Active Substance: RITUXIMAB
     Indication: GRANULOMATOSIS WITH POLYANGIITIS
     Dosage: UNK, INFUSION
     Route: 065

REACTIONS (2)
  - COVID-19 [Fatal]
  - Respiratory failure [Unknown]
